FAERS Safety Report 7963908-6 (Version None)
Quarter: 2011Q4

REPORT INFORMATION
  Report Type: 
  Country: None (occurrence: None)
  Receive Date: 20111205
  Receipt Date: 20111122
  Transmission Date: 20120403
  Serious: Yes (Disabling)
  Sender: FDA-Public Use
  Company Number: DK-SEPTODONT-201100216

PATIENT
  Sex: Male

DRUGS (1)
  1. SEPTANEST [Suspect]
     Indication: LOCAL ANAESTHESIA
     Dosage: STYRKE: 40 MG/ML+5 MIKROG/ML DENTAL
     Route: 004

REACTIONS (8)
  - ACTIVITIES OF DAILY LIVING IMPAIRED [None]
  - ORAL PAIN [None]
  - INSOMNIA [None]
  - NERVE INJURY [None]
  - ORAL DYSAESTHESIA [None]
  - PARAESTHESIA ORAL [None]
  - PAIN OF SKIN [None]
  - SKIN BURNING SENSATION [None]
